FAERS Safety Report 12186587 (Version 1)
Quarter: 2016Q1

REPORT INFORMATION
  Report Type: Spontaneous
  Country: US (occurrence: US)
  Receive Date: 20160317
  Receipt Date: 20160317
  Transmission Date: 20160526
  Serious: Yes (Other)
  Sender: FDA-Public Use
  Company Number: US-BEH-2016060168

PATIENT
  Age: 73 Year
  Sex: Female
  Weight: 86 kg

DRUGS (33)
  1. HIZENTRA [Suspect]
     Active Substance: HUMAN IMMUNOGLOBULIN G
     Dosage: STRENGTH OF DOSAGE FORM: 2GM IN 10ML, 4GM IN 20ML
     Route: 058
  2. HYDROCODONE-ACETAMINIOPHEN [Concomitant]
  3. HIZENTRA [Suspect]
     Active Substance: HUMAN IMMUNOGLOBULIN G
     Dosage: STRENGTH OF DOSAGE FORM: 2GM 10ML, 4GM 20ML VIALS
     Route: 058
  4. CITRACAL-VITAMIN D [Concomitant]
  5. PLAVIX [Concomitant]
     Active Substance: CLOPIDOGREL BISULFATE
  6. LMX [Concomitant]
     Active Substance: LIDOCAINE
  7. FISH OIL [Concomitant]
     Active Substance: FISH OIL
  8. HIZENTRA [Suspect]
     Active Substance: HUMAN IMMUNOGLOBULIN G
     Indication: IMMUNODEFICIENCY COMMON VARIABLE
     Dosage: STRENGTH OF DOSAGE FORM: 2GM 10ML, 4GM 20ML VIALS
     Route: 058
  9. TRICOR [Concomitant]
     Active Substance: FENOFIBRATE
  10. ATORVASTATIN [Concomitant]
     Active Substance: ATORVASTATIN
  11. MULTIVITAMINS [Concomitant]
     Active Substance: VITAMINS
  12. VITAMIN D [Concomitant]
     Active Substance: CHOLECALCIFEROL
  13. EPIPEN [Concomitant]
     Active Substance: EPINEPHRINE
  14. DIPHENHYDRAMINE. [Concomitant]
     Active Substance: DIPHENHYDRAMINE
  15. BUDESONIDE. [Concomitant]
     Active Substance: BUDESONIDE
  16. VENLAFAXINE [Concomitant]
     Active Substance: VENLAFAXINE HYDROCHLORIDE
  17. FOLIC ACID. [Concomitant]
     Active Substance: FOLIC ACID
  18. ASPIRIN. [Concomitant]
     Active Substance: ASPIRIN
  19. PROTONIX [Concomitant]
     Active Substance: PANTOPRAZOLE SODIUM
  20. LOSARTAN. [Concomitant]
     Active Substance: LOSARTAN
  21. VITAMIN C [Concomitant]
     Active Substance: ASCORBIC ACID
  22. PANTOPRAZOLE [Concomitant]
     Active Substance: PANTOPRAZOLE SODIUM
  23. METOPROLOL. [Concomitant]
     Active Substance: METOPROLOL
  24. AZELASTINE [Concomitant]
     Active Substance: AZELASTINE
  25. CRESTOR [Concomitant]
     Active Substance: ROSUVASTATIN CALCIUM
  26. ACETAMINOPHEN. [Concomitant]
     Active Substance: ACETAMINOPHEN
  27. SUMATRIPTAN SUCC [Concomitant]
  28. HIZENTRA [Suspect]
     Active Substance: HUMAN IMMUNOGLOBULIN G
     Dosage: STRENGTH OF DOSAGE FORM: 4G 10MG, 4GM 20ML VIALS
     Route: 058
  29. BIOTIN [Concomitant]
     Active Substance: BIOTIN
  30. PANTOPRAZOLE [Concomitant]
     Active Substance: PANTOPRAZOLE SODIUM
  31. VITAMIN B COMPLEX [Concomitant]
     Active Substance: CYANOCOBALAMIN\DEXPANTHENOL\NIACINAMIDE\PYRIDOXINE HYDROCHLORIDE\RIBOFLAVIN 5^-PHOSPHATE SODIUM\THIAMINE HYDROCHLORIDE\VITAMIN B COMPLEX
  32. MUCINEX [Concomitant]
     Active Substance: GUAIFENESIN
  33. FENOFIBRATE. [Concomitant]
     Active Substance: FENOFIBRATE

REACTIONS (1)
  - Limb reconstructive surgery [Unknown]

NARRATIVE: CASE EVENT DATE: 20160224
